FAERS Safety Report 8875882 (Version 1)
Quarter: 2012Q4

REPORT INFORMATION
  Report Type: 
  Country: US (occurrence: US)
  Receive Date: 20121030
  Receipt Date: 20121030
  Transmission Date: 20130627
  Serious: Yes (Hospitalization, Other)
  Sender: FDA-Public Use
  Company Number: US-B.I. PHARMACEUTICALS,INC./RIDGEFIELD-2012-BP-26824BP

PATIENT

DRUGS (1)
  1. PRADAXA [Suspect]

REACTIONS (3)
  - Diverticulitis intestinal haemorrhagic [Recovered/Resolved]
  - Rectal haemorrhage [Unknown]
  - Haemorrhoids [Unknown]
